FAERS Safety Report 6939169-3 (Version None)
Quarter: 2010Q3

REPORT INFORMATION
  Report Type: 
  Country: None (occurrence: None)
  Receive Date: 20100824
  Receipt Date: 20100819
  Transmission Date: 20110219
  Serious: Yes (Hospitalization)
  Sender: FDA-Public Use
  Company Number: JP-BRISTOL-MYERS SQUIBB COMPANY-15189418

PATIENT
  Age: 63 Year
  Sex: Female
  Weight: 48 kg

DRUGS (3)
  1. CETUXIMAB [Suspect]
     Indication: GASTROOESOPHAGEAL CANCER
     Dosage: REC INF + TEMP DISCONT: 01JUL2010 NO OF INF: 6 RESTARTED 27JUL2010
     Route: 042
     Dates: start: 20100520
  2. CISPLATIN [Suspect]
     Indication: GASTROOESOPHAGEAL CANCER
     Dosage: ON DAY 1 REC INF +TEMP DISCONT: 18JUN2010 RESTARTED 27JUL2010
     Route: 042
     Dates: start: 20100520
  3. XELODA [Suspect]
     Indication: GASTROOESOPHAGEAL CANCER
     Dosage: REC INF+TEMP DISCONT: 02JUL2010 RESTARTED 27JUL2010
     Route: 048
     Dates: start: 20100520

REACTIONS (1)
  - DEEP VEIN THROMBOSIS [None]
